FAERS Safety Report 8784856 (Version 1)
Quarter: 2012Q4

REPORT INFORMATION
  Report Type: Spontaneous
  Country: US (occurrence: None)
  Receive Date: 20120907
  Receipt Date: 20120907
  Transmission Date: 20130627
  Serious: Yes (Other)
  Sender: FDA-Public Use
  Company Number: None

PATIENT
  Age: 45 Year
  Sex: Female

DRUGS (1)
  1. TOPIRAMATE [Suspect]
     Dosage: dates of use - estimate
     Dates: start: 20120227, end: 20120410

REACTIONS (4)
  - Eye pain [None]
  - Vision blurred [None]
  - Myopia [None]
  - Intraocular pressure increased [None]
